FAERS Safety Report 13606997 (Version 1)
Quarter: 2017Q2

REPORT INFORMATION
  Report Type: Spontaneous
  Country: US (occurrence: US)
  Receive Date: 20170602
  Receipt Date: 20170602
  Transmission Date: 20170830
  Serious: No
  Sender: FDA-Public Use
  Company Number: US-NOVEN PHARMACEUTICALS, INC.-US2017000492

PATIENT

DRUGS (4)
  1. DAYTRANA [Suspect]
     Active Substance: METHYLPHENIDATE
     Dosage: 20 MG, UNK
     Route: 062
  2. DAYTRANA [Suspect]
     Active Substance: METHYLPHENIDATE
     Dosage: 15 MG, UNK
     Route: 062
  3. DAYTRANA [Suspect]
     Active Substance: METHYLPHENIDATE
     Dosage: 20 MG, UNK
     Route: 062
     Dates: start: 201701
  4. DAYTRANA [Suspect]
     Active Substance: METHYLPHENIDATE
     Indication: ATTENTION DEFICIT/HYPERACTIVITY DISORDER
     Dosage: 10 MG, UNKNOWN
     Route: 062

REACTIONS (10)
  - Drug dose omission [Recovered/Resolved]
  - Aggression [Recovered/Resolved]
  - Wrong technique in product usage process [Recovered/Resolved]
  - Disturbance in attention [Recovered/Resolved]
  - Disinhibition [Recovered/Resolved]
  - Sexually inappropriate behaviour [Recovered/Resolved]
  - Abnormal behaviour [Recovered/Resolved]
  - Loss of personal independence in daily activities [Recovered/Resolved]
  - Thinking abnormal [Recovered/Resolved]
  - Psychomotor hyperactivity [Recovered/Resolved]
